FAERS Safety Report 8457047-8 (Version None)
Quarter: 2012Q2

REPORT INFORMATION
  Report Type: 
  Country: None (occurrence: None)
  Receive Date: 20120621
  Receipt Date: 20120612
  Transmission Date: 20120825
  Serious: Yes (Hospitalization, Other)
  Sender: FDA-Public Use
  Company Number: US-ELI_LILLY_AND_COMPANY-US201012003029

PATIENT
  Sex: Female
  Weight: 68.027 kg

DRUGS (14)
  1. LASIX [Concomitant]
  2. DIGOXIN [Concomitant]
  3. LOMOTIL [Concomitant]
  4. PREDNISONE [Concomitant]
  5. COREG [Concomitant]
  6. COUMADIN [Concomitant]
  7. DIGOXIN [Concomitant]
     Dosage: UNK, UNKNOWN
     Route: 065
  8. PREVACID [Concomitant]
  9. ACEON [Concomitant]
  10. KLOR-CON [Concomitant]
     Dosage: UNK, UNKNOWN
     Route: 065
  11. VITAMIN D [Concomitant]
     Dosage: UNK, OTHER
  12. VITAMIN B-12 [Concomitant]
     Dosage: UNK, OTHER
  13. FORTEO [Suspect]
     Indication: OSTEOPOROSIS
     Dosage: 20 UG, DAILY (1/D)
     Route: 058
     Dates: start: 20100805
  14. POTASSIUM ACETATE [Concomitant]

REACTIONS (5)
  - FEMUR FRACTURE [None]
  - MUSCULOSKELETAL DISORDER [None]
  - FALL [None]
  - ASTHENIA [None]
  - URINARY TRACT INFECTION [None]
